FAERS Safety Report 6824231-6 (Version None)
Quarter: 2010Q3

REPORT INFORMATION
  Report Type: 
  Country: None (occurrence: None)
  Receive Date: 20100708
  Receipt Date: 20061009
  Transmission Date: 20110219
  Serious: No
  Sender: FDA-Public Use
  Company Number: US-PFIZER INC-2006124604

PATIENT
  Sex: Male
  Weight: 86.18 kg

DRUGS (9)
  1. CHANTIX [Suspect]
     Indication: SMOKING CESSATION THERAPY
     Dates: start: 20061006
  2. BACLOFEN [Concomitant]
  3. MORPHINE [Concomitant]
  4. PERCOCET [Concomitant]
  5. NEURONTIN [Concomitant]
  6. STOOL SOFTENER [Concomitant]
  7. ALL OTHER THERAPEUTIC PRODUCTS [Concomitant]
  8. PAXIL [Concomitant]
  9. COMPAZINE [Concomitant]

REACTIONS (1)
  - NAUSEA [None]
